FAERS Safety Report 17603670 (Version 1)
Quarter: 2020Q1

REPORT INFORMATION
  Report Type: Spontaneous
  Country: IE (occurrence: IE)
  Receive Date: 20200331
  Receipt Date: 20200331
  Transmission Date: 20200409
  Serious: Yes (Hospitalization, Other)
  Sender: FDA-Public Use
  Company Number: IE-AUROBINDO-AUR-APL-2020-015530

PATIENT
  Age: 67 Year
  Sex: Male

DRUGS (2)
  1. METFORMIN [Suspect]
     Active Substance: METFORMIN HYDROCHLORIDE
     Indication: DIABETES MELLITUS
     Dosage: 1000 MILLIGRAM, TWO TIMES A DAY
     Route: 065
  2. GLICLAZIDE [Suspect]
     Active Substance: GLICLAZIDE
     Indication: DIABETES MELLITUS
     Dosage: 30 MILLIGRAM, ONCE A DAY,MODIFIED RELEASE
     Route: 065

REACTIONS (3)
  - Weight decreased [Recovered/Resolved]
  - Diabetic amyotrophy [Recovered/Resolved]
  - Diabetic neuropathy [Recovered/Resolved]
